FAERS Safety Report 23837463 (Version 1)
Quarter: 2024Q2

REPORT INFORMATION
  Report Type: Spontaneous
  Country: US (occurrence: None)
  Receive Date: 20240508
  Receipt Date: 20240508
  Transmission Date: 20240716
  Serious: Yes (Death)
  Sender: FDA-Public Use
  Company Number: None

PATIENT
  Age: 78 Year
  Sex: Female

DRUGS (1)
  1. LENALIDOMIDE [Suspect]
     Active Substance: LENALIDOMIDE
     Indication: Plasma cell myeloma
     Dosage: FREQUENCY : DAILY;?
     Route: 048
     Dates: start: 20231226, end: 20240328

REACTIONS (7)
  - Dementia [None]
  - Sepsis [None]
  - Failure to thrive [None]
  - Pneumonia [None]
  - Urinary tract infection [None]
  - Colitis [None]
  - Hospice care [None]

NARRATIVE: CASE EVENT DATE: 20240324
